FAERS Safety Report 25604416 (Version 1)
Quarter: 2025Q3

REPORT INFORMATION
  Report Type: Other
  Country: EU (occurrence: EU)
  Receive Date: 20250725
  Receipt Date: 20250725
  Transmission Date: 20251021
  Serious: Yes (Other)
  Sender: LUPIN
  Company Number: EU-LUPIN PHARMACEUTICALS INC.-2025-06537

PATIENT
  Age: 91 Year
  Sex: Male

DRUGS (2)
  1. ARIPIPRAZOLE [Suspect]
     Active Substance: ARIPIPRAZOLE
     Indication: Product used for unknown indication
     Dosage: 20 MILLIGRAM, QD (IN THE MORNING)
     Route: 065
  2. PIPAMPERONE HYDROCHLORIDE [Suspect]
     Active Substance: PIPAMPERONE HYDROCHLORIDE
     Indication: Product used for unknown indication
     Dosage: 60 MILLIGRAM, QD (6:00 PM 20MG, 9:00 PM 40MG)
     Route: 065

REACTIONS (9)
  - Altered state of consciousness [Unknown]
  - Unresponsive to stimuli [Unknown]
  - Pupillary disorder [Unknown]
  - Staring [Unknown]
  - Nausea [Unknown]
  - Movement disorder [Unknown]
  - Feeding disorder [Unknown]
  - Muscular weakness [Unknown]
  - Asthenia [Unknown]

NARRATIVE: CASE EVENT DATE: 20250101
